FAERS Safety Report 5146919-8 (Version None)
Quarter: 2006Q4

REPORT INFORMATION
  Report Type: 
  Country: None (occurrence: None)
  Receive Date: 20061107
  Receipt Date: 20061107
  Transmission Date: 20070319
  Serious: No
  Sender: FDA-Public Use
  Company Number: None

PATIENT
  Sex: Female
  Weight: 110 kg

DRUGS (2)
  1. CARBOPLATIN [Suspect]
     Dosage: 623 MG
  2. TAXOL [Suspect]
     Dosage: 350 MG

REACTIONS (1)
  - NEUTROPENIA [None]
